FAERS Safety Report 9747213 (Version 1)
Quarter: 2013Q4

REPORT INFORMATION
  Report Type: Spontaneous
  Country: US (occurrence: US)
  Receive Date: 20131212
  Receipt Date: 20131212
  Transmission Date: 20140711
  Serious: Yes (Other)
  Sender: FDA-Public Use
  Company Number: US-PFIZER INC-2013350739

PATIENT
  Age: 54 Year
  Sex: Female
  Weight: 81.18 kg

DRUGS (2)
  1. DEPO-MEDROL [Suspect]
     Indication: BACK PAIN
     Dosage: UNK
  2. DEPO-MEDROL [Suspect]
     Route: 008

REACTIONS (2)
  - Incorrect route of drug administration [Unknown]
  - Cellulitis [Not Recovered/Not Resolved]
